FAERS Safety Report 16712256 (Version 2)
Quarter: 2019Q3

REPORT INFORMATION
  Report Type: Spontaneous
  Country: JP (occurrence: JP)
  Receive Date: 20190816
  Receipt Date: 20190821
  Transmission Date: 20191004
  Serious: Yes (Other)
  Sender: FDA-Public Use
  Company Number: JP-SAKK-2019SA131505AA

PATIENT
  Age: 24 Year
  Sex: Male

DRUGS (8)
  1. FEXOFENADINE HYDROCHLORIDE. [Suspect]
     Active Substance: FEXOFENADINE HYDROCHLORIDE
     Indication: ALOPECIA AREATA
     Dosage: 120 MG/DAY, BID
     Route: 048
     Dates: start: 20161128, end: 20161211
  2. FEXOFENADINE HYDROCHLORIDE. [Suspect]
     Active Substance: FEXOFENADINE HYDROCHLORIDE
     Dosage: 60 MG, BID
     Route: 048
     Dates: start: 20170308, end: 20180427
  3. FEXOFENADINE HYDROCHLORIDE. [Suspect]
     Active Substance: FEXOFENADINE HYDROCHLORIDE
     Dosage: 60 MG, BID
     Route: 048
     Dates: start: 20161212, end: 20170403
  4. EPINASTINE HYDROCHLORIDE. [Suspect]
     Active Substance: EPINASTINE HYDROCHLORIDE
     Indication: ALOPECIA AREATA
     Dosage: 20 MG, QD
     Route: 048
     Dates: start: 20150930, end: 20151130
  5. FEXOFENADINE HYDROCHLORIDE. [Suspect]
     Active Substance: FEXOFENADINE HYDROCHLORIDE
     Dosage: 60 MG, BID
     Route: 048
     Dates: start: 20170428, end: 20170628
  6. ANTEBATE [Concomitant]
     Active Substance: BETAMETHASONE DIPROPIONATE
     Indication: PRODUCT USED FOR UNKNOWN INDICATION
     Route: 065
  7. ALLEGRA [Suspect]
     Active Substance: FEXOFENADINE HYDROCHLORIDE
     Indication: ALOPECIA AREATA
     Route: 048
     Dates: start: 201308, end: 201310
  8. FEXOFENADINE HYDROCHLORIDE. [Suspect]
     Active Substance: FEXOFENADINE HYDROCHLORIDE
     Indication: ALOPECIA AREATA
     Dosage: 120 MG/DAY, BID
     Route: 048
     Dates: start: 20160714, end: 20161122

REACTIONS (3)
  - Alopecia areata [Not Recovered/Not Resolved]
  - Alopecia universalis [Not Recovered/Not Resolved]
  - Alopecia [Not Recovered/Not Resolved]

NARRATIVE: CASE EVENT DATE: 201308
